FAERS Safety Report 5284304-9 (Version None)
Quarter: 2007Q2

REPORT INFORMATION
  Report Type: 
  Country: None (occurrence: None)
  Receive Date: 20070403
  Receipt Date: 20070321
  Transmission Date: 20071010
  Serious: Yes (Hospitalization)
  Sender: FDA-Public Use
  Company Number: PHBS2007CO05183

PATIENT
  Age: 21 Year
  Sex: Male

DRUGS (4)
  1. EXJADE [Suspect]
     Indication: SICKLE CELL ANAEMIA
     Dosage: 1250 MG, QD; WHOLE DOSE BEFORE BREAKFAST
     Route: 048
     Dates: start: 20070118, end: 20070120
  2. EXJADE [Suspect]
     Dosage: 750 MG, QD, WHOLE DOSE BEFORE BREAKFAST
     Route: 048
     Dates: start: 20070127, end: 20070130
  3. HYDREA [Concomitant]
     Route: 065
     Dates: start: 20000101
  4. WARFARIN SODIUM [Concomitant]
     Indication: ANTICOAGULANT THERAPY
     Route: 065

REACTIONS (8)
  - CHEST PAIN [None]
  - DERMATITIS [None]
  - DISCOMFORT [None]
  - DYSPNOEA [None]
  - MUSCULOSKELETAL PAIN [None]
  - NAUSEA [None]
  - PAIN IN EXTREMITY [None]
  - VOMITING [None]
